FAERS Safety Report 5024588-5 (Version None)
Quarter: 2006Q2

REPORT INFORMATION
  Report Type: 
  Country: None (occurrence: None)
  Receive Date: 20060426
  Receipt Date: 20060201
  Transmission Date: 20061013
  Serious: Yes (Other)
  Sender: FDA-Public Use
  Company Number: 2005173558

PATIENT
  Age: 78 Year
  Sex: Male
  Weight: 72.5755 kg

DRUGS (7)
  1. LYRICA [Suspect]
     Indication: NERVE INJURY
     Dosage: 150 MG (50 MG,3 IN 1 D),ORAL
     Route: 048
     Dates: start: 20051121, end: 20051125
  2. ZESTERIL (LISINOPRIL) [Concomitant]
  3. ALPRAZOLAM [Concomitant]
  4. COUMADIN [Concomitant]
  5. VITAMIN C (VITAMIN C) [Concomitant]
  6. CALCIUM WITH VITAMIN D (CALCIUM PHOSPHATE, CALCIUM SODIUM, LACTATE, ER [Concomitant]
  7. LASIX [Concomitant]

REACTIONS (9)
  - ABDOMINAL DISTENSION [None]
  - ABDOMINAL PAIN UPPER [None]
  - CARDIAC FAILURE CONGESTIVE [None]
  - COUGH [None]
  - DRUG WITHDRAWAL SYNDROME [None]
  - DYSPNOEA PAROXYSMAL NOCTURNAL [None]
  - HEAD TITUBATION [None]
  - ORTHOPNOEA [None]
  - TREMOR [None]
